FAERS Safety Report 15386714 (Version 2)
Quarter: 2018Q3

REPORT INFORMATION
  Report Type: Spontaneous
  Country: US (occurrence: US)
  Receive Date: 20180914
  Receipt Date: 20180927
  Transmission Date: 20181010
  Serious: No
  Sender: FDA-Public Use
  Company Number: US-TEVA-2018-US-953456

PATIENT
  Age: 64 Year
  Sex: Male

DRUGS (4)
  1. CELEXA [Suspect]
     Active Substance: CITALOPRAM HYDROBROMIDE
     Indication: STRESS
     Route: 065
  2. TRAZODONE [Suspect]
     Active Substance: TRAZODONE HYDROCHLORIDE
     Indication: STRESS
     Route: 065
     Dates: start: 2015
  3. TRAZODONE [Suspect]
     Active Substance: TRAZODONE HYDROCHLORIDE
     Route: 065
     Dates: start: 2018
  4. KEPPRA [Concomitant]
     Active Substance: LEVETIRACETAM
     Route: 065

REACTIONS (8)
  - Abdominal pain [Unknown]
  - Abnormal behaviour [Unknown]
  - Oropharyngeal pain [Unknown]
  - Gait disturbance [Unknown]
  - Adverse reaction [Unknown]
  - Confusional state [Unknown]
  - Personality change [Unknown]
  - Dysarthria [Unknown]

NARRATIVE: CASE EVENT DATE: 2018
